FAERS Safety Report 6158120-X (Version None)
Quarter: 2009Q2

REPORT INFORMATION
  Report Type: 
  Country: None (occurrence: None)
  Receive Date: 20090417
  Receipt Date: 20090403
  Transmission Date: 20091009
  Serious: Yes (Other)
  Sender: FDA-Public Use
  Company Number: TR-ROCHE-625889

PATIENT
  Sex: Male
  Weight: 72 kg

DRUGS (1)
  1. ROACCUTANE [Suspect]
     Indication: ACNE
     Route: 048
     Dates: start: 20081104, end: 20090204

REACTIONS (1)
  - FACIAL PALSY [None]
